FAERS Safety Report 15589351 (Version 4)
Quarter: 2021Q1

REPORT INFORMATION
  Report Type: Other
  Country: US (occurrence: US)
  Receive Date: 20181106
  Receipt Date: 20210303
  Transmission Date: 20210419
  Serious: No
  Sender: FDA-Public Use
  Company Number: US-ROCHE-2209264

PATIENT
  Age: 55 Year
  Sex: Female

DRUGS (5)
  1. BENADRYL [Concomitant]
     Active Substance: DIPHENHYDRAMINE HYDROCHLORIDE
     Dosage: ONGOING:UNKNOWN
     Route: 042
  2. OCREVUS [Suspect]
     Active Substance: OCRELIZUMAB
     Dosage: DISPENSE IN THE FORM OF 2 OF 300 MG VIALS (REFILL 6)
     Route: 042
  3. OCREVUS [Suspect]
     Active Substance: OCRELIZUMAB
     Indication: RELAPSING-REMITTING MULTIPLE SCLEROSIS
     Dosage: ONGOING: UNKNOWN, TREATMENT DATES:17/OCT/201, 24/OCT/2018, 23/MAY/2019, 17/AUG/2020, 24/APR/2018, 08
     Route: 042
     Dates: start: 20171017
  4. OCREVUS [Suspect]
     Active Substance: OCRELIZUMAB
     Dosage: DOSING REGIMEN 2 TIMES?DISPENSE 2 300 MG VIALS
     Route: 042
  5. BENADRYL [Concomitant]
     Active Substance: DIPHENHYDRAMINE HYDROCHLORIDE
     Dosage: ONGOING: UNKNOWN?BUT DUE TO LACK OF AVAILABILITY SHE RECEIVED BEFORE HER 24/OCT/2018 INFUSION
     Route: 048

REACTIONS (10)
  - Blister [Unknown]
  - Asthenia [Recovered/Resolved]
  - Intentional product misuse [Unknown]
  - Pyrexia [Recovered/Resolved]
  - Pruritus [Recovered/Resolved]
  - Illness [Unknown]
  - Urticaria [Recovered/Resolved]
  - Fatigue [Recovered/Resolved]
  - Off label use [Unknown]
  - Oral herpes [Unknown]

NARRATIVE: CASE EVENT DATE: 20181026
